FAERS Safety Report 22231905 (Version 1)
Quarter: 2023Q2

REPORT INFORMATION
  Report Type: Report from Study
  Country: CO (occurrence: CO)
  Receive Date: 20230420
  Receipt Date: 20230420
  Transmission Date: 20230722
  Serious: Yes (Death, Hospitalization, Other)
  Sender: FDA-Public Use
  Company Number: CO-UCBSA-2022059758

PATIENT
  Age: 87 Year
  Sex: Male

DRUGS (6)
  1. ROTIGOTINE [Suspect]
     Active Substance: ROTIGOTINE
     Indication: Parkinson^s disease
     Dosage: 2 MILLIGRAM, ONCE DAILY (QD)
     Route: 062
     Dates: start: 20220919
  2. ROTIGOTINE [Suspect]
     Active Substance: ROTIGOTINE
     Dosage: 8MG, 24 HOURS
     Route: 062
     Dates: start: 20210919, end: 20230316
  3. CARBIDOPA LEVODOPA [Concomitant]
     Active Substance: CARBIDOPA\LEVODOPA
     Indication: Parkinson^s disease
     Dosage: 25/ 250 MG
     Route: 048
  4. CARBIDOPA LEVODOPA [Concomitant]
     Active Substance: CARBIDOPA\LEVODOPA
     Dosage: UNK
     Route: 048
     Dates: end: 20230316
  5. SAFINAMIDE [Concomitant]
     Active Substance: SAFINAMIDE
     Indication: Parkinson^s disease
     Dosage: 100 MILLIGRAM, ONCE DAILY (QD)
     Route: 048
  6. SAFINAMIDE [Concomitant]
     Active Substance: SAFINAMIDE
     Dosage: UNK
     Dates: end: 20230316

REACTIONS (3)
  - Tracheitis [Fatal]
  - Pneumonia aspiration [Fatal]
  - Hallucination [Recovering/Resolving]

NARRATIVE: CASE EVENT DATE: 20221006
